FAERS Safety Report 10018937 (Version 3)
Quarter: 2014Q3

REPORT INFORMATION
  Report Type: Spontaneous
  Country: US (occurrence: US)
  Receive Date: 20140318
  Receipt Date: 20140911
  Transmission Date: 20150326
  Serious: Yes (Hospitalization)
  Sender: FDA-Public Use
  Company Number: US-GLAXOSMITHKLINE-A1064552A

PATIENT
  Age: 44 Year
  Sex: Male

DRUGS (1)
  1. FLOVENT [Suspect]
     Active Substance: FLUTICASONE PROPIONATE
     Indication: OXYGEN SATURATION DECREASED
     Dosage: 110MCG UNKNOWN
     Route: 055
     Dates: start: 20140211

REACTIONS (4)
  - Investigation [Unknown]
  - Pharyngitis streptococcal [Unknown]
  - Surgery [Unknown]
  - Oropharyngeal pain [Unknown]
